FAERS Safety Report 21741909 (Version 1)
Quarter: 2022Q4

REPORT INFORMATION
  Report Type: Spontaneous
  Country: FR (occurrence: FR)
  Receive Date: 20221216
  Receipt Date: 20221216
  Transmission Date: 20230112
  Serious: Yes (Hospitalization)
  Sender: FDA-Public Use
  Company Number: None

PATIENT
  Sex: Male

DRUGS (2)
  1. ATROPINE SULFATE [Suspect]
     Active Substance: ATROPINE SULFATE
     Indication: Product used for unknown indication
     Dosage: UNK
     Route: 048
     Dates: start: 202203, end: 202203
  2. LYSERGIDE [Concomitant]
     Active Substance: LYSERGIDE
     Dosage: UNK
     Route: 048
     Dates: start: 202203, end: 202203

REACTIONS (3)
  - Behaviour disorder [Recovered/Resolved]
  - Drug abuse [Unknown]
  - Product counterfeit [Unknown]

NARRATIVE: CASE EVENT DATE: 20220301
